FAERS Safety Report 8237065-5 (Version None)
Quarter: 2012Q1

REPORT INFORMATION
  Report Type: 
  Country: None (occurrence: None)
  Receive Date: 20120327
  Receipt Date: 20120320
  Transmission Date: 20120608
  Serious: Yes (Death, Hospitalization)
  Sender: FDA-Public Use
  Company Number: FR-PFIZER INC-2012071718

PATIENT
  Age: 75 Year
  Sex: Male

DRUGS (3)
  1. FLUCONAZOLE [Suspect]
     Dosage: 200 MG DAILY
     Route: 042
     Dates: start: 20111129
  2. CEFTAZIDIME [Concomitant]
     Indication: HYPERTENSION
     Dosage: UNK
     Dates: start: 20111114, end: 20111129
  3. CASPOFUNGIN [Concomitant]
     Indication: HYPERTENSION
     Dosage: UNK
     Dates: start: 20111123, end: 20111129

REACTIONS (2)
  - VASCULAR OCCLUSION [None]
  - PORPHYRIA [None]
